FAERS Safety Report 9262623 (Version 2)
Quarter: 2013Q3

REPORT INFORMATION
  Report Type: Spontaneous
  Country: CA (occurrence: CA)
  Receive Date: 20130430
  Receipt Date: 20130731
  Transmission Date: 20140515
  Serious: Yes (Other)
  Sender: FDA-Public Use
  Company Number: CA-SHIRE-ALL1-2013-02579

PATIENT
  Age: 9 Year
  Sex: Male
  Weight: 18.5 kg

DRUGS (4)
  1. VYVANSE [Suspect]
     Indication: ATTENTION DEFICIT/HYPERACTIVITY DISORDER
     Dosage: 20 MG, 1X/DAY:QD
     Route: 048
     Dates: start: 20120827, end: 201209
  2. VYVANSE [Suspect]
     Dosage: 30 MG, 1X/DAY:QD (IN THE MORNING)
     Route: 048
     Dates: start: 201209
  3. VYVANSE [Suspect]
     Dosage: 20 MG, 1X/DAY:QD
     Route: 048
     Dates: start: 20130509
  4. METHYLPHENIDATE [Concomitant]
     Indication: ATTENTION DEFICIT/HYPERACTIVITY DISORDER
     Dosage: 5 MG, 1X/DAY:QD (IN THE AFTERNOON BETWEEN 3PM AND 4:30 PM)
     Route: 048
     Dates: start: 20130111

REACTIONS (3)
  - Blindness transient [Recovered/Resolved]
  - Pallor [Unknown]
  - Fall [Recovered/Resolved]
